FAERS Safety Report 5937138-3 (Version None)
Quarter: 2008Q4

REPORT INFORMATION
  Report Type: 
  Country: None (occurrence: None)
  Receive Date: 20081031
  Receipt Date: 20081024
  Transmission Date: 20090506
  Serious: Yes (Hospitalization)
  Sender: FDA-Public Use
  Company Number: PHHY2008JP22878

PATIENT
  Age: 68 Year
  Sex: Male

DRUGS (11)
  1. GLEEVEC [Suspect]
     Indication: CHRONIC MYELOID LEUKAEMIA
     Dosage: 400 MG/DAY
     Route: 048
     Dates: start: 20080715, end: 20080804
  2. GLEEVEC [Suspect]
     Dosage: 200 MG, QD
     Route: 048
     Dates: start: 20080917, end: 20080919
  3. PREDNISOLONE [Concomitant]
  4. THYRADIN [Concomitant]
  5. FAMOTIDINE [Concomitant]
  6. AMARYL [Concomitant]
  7. HUMALOG [Concomitant]
  8. CAMOSTAT MESILATE [Concomitant]
     Dosage: UNK
  9. EPADEL [Concomitant]
  10. BERIZYM [Concomitant]
  11. BUFFERIN [Concomitant]

REACTIONS (6)
  - ALANINE AMINOTRANSFERASE INCREASED [None]
  - ASPARTATE AMINOTRANSFERASE INCREASED [None]
  - BLOOD AMYLASE INCREASED [None]
  - HEPATIC ENZYME INCREASED [None]
  - LIPASE INCREASED [None]
  - PANCREATIC ENZYMES INCREASED [None]
